FAERS Safety Report 7339529-5 (Version None)
Quarter: 2011Q1

REPORT INFORMATION
  Report Type: 
  Country: None (occurrence: None)
  Receive Date: 20110308
  Receipt Date: 20110201
  Transmission Date: 20110831
  Serious: No
  Sender: FDA-Public Use
  Company Number: US-AMGEN-USASP2010009926

PATIENT
  Age: 50 Year
  Sex: Female
  Weight: 51.247 kg

DRUGS (1)
  1. PROLIA [Suspect]
     Indication: OSTEOPOROSIS POSTMENOPAUSAL
     Dosage: 60 MG, UNK
     Route: 058
     Dates: start: 20100813

REACTIONS (2)
  - ABDOMINAL PAIN [None]
  - DIARRHOEA [None]
